FAERS Safety Report 5778064-2 (Version None)
Quarter: 2008Q2

REPORT INFORMATION
  Report Type: 
  Country: None (occurrence: None)
  Receive Date: 20080617
  Receipt Date: 20080617
  Transmission Date: 20081010
  Serious: Yes (Death, Other)
  Sender: FDA-Public Use
  Company Number: None

PATIENT
  Sex: Female
  Weight: 63.9572 kg

DRUGS (1)
  1. REMODULIN [Suspect]
     Indication: PULMONARY HYPERTENSION
     Dosage: 0.030ML/HR CONTINUOUSLY SQ
     Dates: start: 20080331, end: 20080409

REACTIONS (5)
  - ERYTHEMA [None]
  - MIGRAINE [None]
  - NAUSEA [None]
  - NONSPECIFIC REACTION [None]
  - PHARMACEUTICAL PRODUCT COMPLAINT [None]
